FAERS Safety Report 6525200-6 (Version None)
Quarter: 2009Q4

REPORT INFORMATION
  Report Type: 
  Country: None (occurrence: None)
  Receive Date: 20091214
  Receipt Date: 20090223
  Transmission Date: 20100525
  Serious: Yes (Other)
  Sender: FDA-Public Use
  Company Number: 616633

PATIENT
  Age: 59 Year
  Sex: Female
  Weight: 45.4 kg

DRUGS (5)
  1. PEGASYS [Suspect]
     Indication: HEPATITIS C
     Dosage: 180 UG 1 PER WEEK SUBCUTANEOUS
     Route: 058
     Dates: start: 20080711
  2. RIBAVIRIN [Suspect]
     Indication: HEPATITIS C
     Dosage: 400 MG 2 PER DAY ORAL
     Route: 048
     Dates: start: 20080711
  3. AMBIEN [Concomitant]
  4. QUINAPRIL (CHINAPRYL) [Concomitant]
  5. TYLENOL [Concomitant]

REACTIONS (6)
  - ABDOMINAL PAIN [None]
  - ANAEMIA [None]
  - MENTAL DISORDER [None]
  - MYOPIA [None]
  - RETINAL EXUDATES [None]
  - WEIGHT DECREASED [None]
